FAERS Safety Report 13455064 (Version 2)
Quarter: 2017Q2

REPORT INFORMATION
  Report Type: Spontaneous
  Country: FR (occurrence: FR)
  Receive Date: 20170418
  Receipt Date: 20170602
  Transmission Date: 20170830
  Serious: Yes (Death, Other)
  Sender: FDA-Public Use
  Company Number: FR-TEVA-760103ROM

PATIENT
  Age: 29 Year
  Sex: Male

DRUGS (5)
  1. IBUPROFEN. [Suspect]
     Active Substance: IBUPROFEN
     Indication: SINUSITIS
     Route: 065
  2. CEFPODOXIME PROXETIL. [Concomitant]
     Active Substance: CEFPODOXIME PROXETIL
     Indication: SINUSITIS
     Route: 065
  3. ZOLMITRIPTAN. [Concomitant]
     Active Substance: ZOLMITRIPTAN
     Indication: SINUSITIS
     Route: 065
  4. KETOPROFEN. [Suspect]
     Active Substance: KETOPROFEN
     Indication: SINUSITIS
     Route: 065
  5. PARACETAMOL [Suspect]
     Active Substance: ACETAMINOPHEN
     Indication: SINUSITIS
     Route: 065

REACTIONS (5)
  - Coma [Unknown]
  - Brain oedema [Unknown]
  - Meningoencephalitis bacterial [Unknown]
  - Brain herniation [Unknown]
  - Brain death [Fatal]
